FAERS Safety Report 18344562 (Version 3)
Quarter: 2022Q2

REPORT INFORMATION
  Report Type: Spontaneous
  Country: US (occurrence: US)
  Receive Date: 20201005
  Receipt Date: 20220517
  Transmission Date: 20220721
  Serious: No
  Sender: FDA-Public Use
  Company Number: US-PFIZER INC-2019028028

PATIENT
  Age: 64 Year
  Sex: Female

DRUGS (4)
  1. PRISTIQ EXTENDED-RELEASE [Suspect]
     Active Substance: DESVENLAFAXINE SUCCINATE
     Indication: Major depression
     Dosage: 25 MG, DAILY (^START 1 TABLET DAILY FOR 1 WEEK THEN INCREASE TO 2 TABLETS DAILY^,^TAKE 3 TABS DAILY)
     Route: 048
     Dates: start: 20190110
  2. PRISTIQ EXTENDED-RELEASE [Suspect]
     Active Substance: DESVENLAFAXINE SUCCINATE
     Indication: Anxiety disorder
     Dosage: 50 MG, DAILY (^START 1 TABLET DAILY FOR 1 WEEK THEN INCREASE TO 2 TABLETS DAILY)
     Route: 048
  3. PRISTIQ EXTENDED-RELEASE [Suspect]
     Active Substance: DESVENLAFAXINE SUCCINATE
     Dosage: 75 MG, DAILY (^START 1 TABLET DAILY FOR 1 WEEK THEN INCREASE TO 2 TABLETS DAILY^,^TAKE 3 TABS DAILY)
     Route: 048
  4. PRISTIQ EXTENDED-RELEASE [Suspect]
     Active Substance: DESVENLAFAXINE SUCCINATE
     Dosage: 100 MG, DAILY [TAKE 100 MG TOTAL (1 TABLET) BY MOUTH DAILY]
     Route: 048

REACTIONS (3)
  - Dizziness [Unknown]
  - Circumstance or information capable of leading to medication error [Unknown]
  - Product physical issue [Unknown]
